FAERS Safety Report 5679927-9 (Version None)
Quarter: 2008Q1

REPORT INFORMATION
  Report Type: 
  Country: None (occurrence: None)
  Receive Date: 20080324
  Receipt Date: 20080307
  Transmission Date: 20080703
  Serious: Yes (Life-Threatening)
  Sender: FDA-Public Use
  Company Number: 2008JP000761

PATIENT
  Age: 64 Year
  Sex: Male
  Weight: 56.3 kg

DRUGS (6)
  1. PROGRAF [Suspect]
     Indication: RENAL TRANSPLANT
     Dosage: 2 MG, BID, ORAL
     Route: 048
     Dates: start: 20070418, end: 20070705
  2. CELLCEPT [Concomitant]
  3. MEDROL [Concomitant]
  4. AMLODIN (AMLODIPINE BESILATE) TABLET [Concomitant]
  5. LANSOPRAZOLE [Concomitant]
  6. BAYASPIRIN TABLET [Concomitant]

REACTIONS (4)
  - ANGINA PECTORIS [None]
  - GASTRIC ULCER [None]
  - HAEMODIALYSIS [None]
  - LYMPHOMA [None]
